FAERS Safety Report 14066796 (Version 1)
Quarter: 2017Q4

REPORT INFORMATION
  Report Type: Spontaneous
  Country: US (occurrence: US)
  Receive Date: 20171006
  Receipt Date: 20171006
  Transmission Date: 20180321
  Serious: Yes (Hospitalization, Disabling)
  Sender: FDA-Public Use
  Company Number: None

PATIENT
  Age: 50 Year
  Sex: Female
  Weight: 53.1 kg

DRUGS (10)
  1. CELLCEPT [Concomitant]
     Active Substance: MYCOPHENOLATE MOFETIL\MYCOPHENOLATE MOFETIL HYDROCHLORIDE
  2. PREDNISONE. [Concomitant]
     Active Substance: PREDNISONE
  3. LYRICA [Concomitant]
     Active Substance: PREGABALIN
  4. BABY ASPIRIN [Concomitant]
     Active Substance: ASPIRIN
  5. LEVAQUIN [Suspect]
     Active Substance: LEVOFLOXACIN
     Indication: PNEUMONIA
     Route: 042
     Dates: start: 20170907, end: 20170919
  6. PROZAC [Concomitant]
     Active Substance: FLUOXETINE HYDROCHLORIDE
  7. PROGESTERONE. [Concomitant]
     Active Substance: PROGESTERONE
  8. NEORAL [Concomitant]
     Active Substance: CYCLOSPORINE
  9. DEPAKOTE [Concomitant]
     Active Substance: DIVALPROEX SODIUM
  10. VITAMIN D [Concomitant]
     Active Substance: CHOLECALCIFEROL

REACTIONS (3)
  - Gait inability [None]
  - Loss of personal independence in daily activities [None]
  - Tendonitis [None]

NARRATIVE: CASE EVENT DATE: 20170914
